FAERS Safety Report 10023676 (Version 2)
Quarter: 2014Q2

REPORT INFORMATION
  Report Type: Report from Study
  Country: GB (occurrence: GB)
  Receive Date: 20140320
  Receipt Date: 20140402
  Transmission Date: 20141212
  Serious: Yes (Other)
  Sender: FDA-Public Use
  Company Number: GB-JNJFOC-20140305958

PATIENT
  Age: 69 Year
  Sex: Male

DRUGS (6)
  1. STELARA [Suspect]
     Indication: PSORIASIS
     Route: 058
     Dates: start: 20140318
  2. STELARA [Suspect]
     Indication: PSORIASIS
     Route: 058
     Dates: start: 20131125
  3. STELARA [Suspect]
     Indication: PSORIASIS
     Route: 058
     Dates: start: 20131220
  4. LOSARTAN [Concomitant]
     Route: 065
     Dates: start: 20120109
  5. LANSOPRAZOLE [Concomitant]
     Route: 065
     Dates: start: 20040317
  6. PARACETAMOL [Concomitant]
     Route: 065
     Dates: start: 20140211

REACTIONS (2)
  - Lower respiratory tract infection [Recovered/Resolved]
  - Oropharyngeal pain [Recovered/Resolved]
